FAERS Safety Report 20430192 (Version 1)
Quarter: 2022Q1

REPORT INFORMATION
  Report Type: Report from Study
  Country: FR (occurrence: FR)
  Receive Date: 20220204
  Receipt Date: 20220204
  Transmission Date: 20220423
  Serious: Yes (Hospitalization)
  Sender: FDA-Public Use
  Company Number: FR-SERVIER-S19013794

PATIENT

DRUGS (7)
  1. ONCASPAR [Suspect]
     Active Substance: PEGASPARGASE
     Indication: Acute lymphocytic leukaemia
     Dosage: 2700 IU, ON D12
     Route: 042
     Dates: start: 20191105, end: 20191105
  2. VINCRISTINE [Suspect]
     Active Substance: VINCRISTINE
     Indication: Acute lymphocytic leukaemia
     Dosage: 1.6 MG, ON D8, D15, D22, D29 DELAYED
     Route: 042
     Dates: start: 20191029, end: 20191119
  3. DAUNORUBICIN [Suspect]
     Active Substance: DAUNORUBICIN
     Indication: Acute lymphocytic leukaemia
     Dosage: 32 MG, ON D8, D15, D22, D29 DELAYED
     Route: 042
     Dates: start: 20191030, end: 20191119
  4. DEXAMETHASONE [Suspect]
     Active Substance: DEXAMETHASONE
     Indication: Acute lymphocytic leukaemia
     Dosage: 10 MG QD FROM D8 TO D29
     Route: 048
     Dates: start: 20191028, end: 20191118
  5. METHOTREXATE [Suspect]
     Active Substance: METHOTREXATE
     Indication: Acute lymphocytic leukaemia
     Dosage: 15 MG, ON D9, D13, D18, D24 DELAYED
     Route: 037
     Dates: start: 20191106, end: 20191118
  6. CYTARABINE [Suspect]
     Active Substance: CYTARABINE
     Indication: Acute lymphocytic leukaemia
     Dosage: 30 MG
     Route: 037
     Dates: start: 20191118, end: 20191118
  7. HYDROCORTISONE [Suspect]
     Active Substance: HYDROCORTISONE
     Indication: Acute lymphocytic leukaemia
     Dosage: 15 MG, ON D24 DELAYED
     Route: 037
     Dates: start: 20191118, end: 20191118

REACTIONS (1)
  - Posterior reversible encephalopathy syndrome [Recovered/Resolved]

NARRATIVE: CASE EVENT DATE: 20191120
